FAERS Safety Report 9209117 (Version 3)
Quarter: 2013Q3

REPORT INFORMATION
  Report Type: Report from Study
  Country: DE (occurrence: DE)
  Receive Date: 20130404
  Receipt Date: 20130712
  Transmission Date: 20140515
  Serious: Yes (Hospitalization)
  Sender: FDA-Public Use
  Company Number: PHHO2010DE13591

PATIENT
  Age: 62 Year
  Sex: Male
  Weight: 91 kg

DRUGS (11)
  1. ENALAPRIL [Suspect]
     Indication: CARDIAC FAILURE
     Route: 048
     Dates: end: 20110421
  2. COMPARATOR ENALAPRIL [Suspect]
     Indication: CARDIAC FAILURE
     Dosage: UNK
     Route: 048
     Dates: start: 20100611, end: 20100830
  3. ALISKIREN [Suspect]
     Indication: CARDIAC FAILURE
     Dosage: UNK
     Route: 048
     Dates: start: 20100623, end: 20100830
  4. ACETYLSALICYLIC ACID [Concomitant]
     Indication: CORONARY ARTERY DISEASE
  5. MORPHINE [Concomitant]
     Indication: PAIN
  6. METOPROLOL [Concomitant]
     Indication: CARDIAC FAILURE
  7. ZOPICLONE [Concomitant]
  8. SIMVASTATIN [Concomitant]
     Indication: HYPERLIPIDAEMIA
  9. PANTOPRAZOLE [Concomitant]
  10. ACTRAPID [Concomitant]
     Indication: DIABETES MELLITUS
  11. PROTAPHANE [Concomitant]
     Indication: DIABETES MELLITUS

REACTIONS (3)
  - Angina pectoris [Recovered/Resolved]
  - Coronary artery disease [Not Recovered/Not Resolved]
  - Concomitant disease progression [Recovered/Resolved]
